FAERS Safety Report 11752111 (Version 1)
Quarter: 2015Q4

REPORT INFORMATION
  Report Type: Spontaneous
  Country: PL (occurrence: PL)
  Receive Date: 20151118
  Receipt Date: 20151118
  Transmission Date: 20160304
  Serious: Yes (Other)
  Sender: FDA-Public Use
  Company Number: PHHY2015PL143598

PATIENT
  Age: 63 Year
  Sex: Male

DRUGS (34)
  1. CELLCEPT [Suspect]
     Active Substance: MYCOPHENOLATE MOFETIL\MYCOPHENOLATE MOFETIL HYDROCHLORIDE
     Indication: RENAL TRANSPLANT
     Dosage: 1000 MG, BID
     Route: 065
  2. IPOREL [Suspect]
     Active Substance: CLONIDINE
     Indication: RENAL TRANSPLANT
     Dosage: 2 DF, QD
     Route: 065
  3. CIPROFLOXACIN. [Concomitant]
     Active Substance: CIPROFLOXACIN
     Indication: STAPHYLOCOCCAL INFECTION
     Dosage: 200 MG, BID
     Route: 042
  4. AMIKACIN [Concomitant]
     Active Substance: AMIKACIN
     Indication: STAPHYLOCOCCAL INFECTION
     Route: 065
  5. ZOCOR [Suspect]
     Active Substance: SIMVASTATIN
     Indication: RENAL TRANSPLANT
     Dosage: 20 MG, QD
     Route: 065
  6. CLINDAMYCIN [Concomitant]
     Active Substance: CLINDAMYCIN\CLINDAMYCIN PHOSPHATE
     Indication: STAPHYLOCOCCAL INFECTION
     Route: 065
  7. CICLOSPORIN [Suspect]
     Active Substance: CYCLOSPORINE
     Indication: IMMUNOSUPPRESSANT DRUG THERAPY
  8. FUROSEMIDE. [Suspect]
     Active Substance: FUROSEMIDE
     Indication: RENAL TRANSPLANT
     Dosage: 1 DF, QD
     Route: 065
  9. FUROSEMIDE. [Suspect]
     Active Substance: FUROSEMIDE
     Indication: IMMUNOSUPPRESSANT DRUG THERAPY
  10. ENCORTON [Suspect]
     Active Substance: PREDNISONE
     Indication: IMMUNOSUPPRESSANT DRUG THERAPY
  11. LIPANTHYL [Suspect]
     Active Substance: FENOFIBRATE
     Indication: IMMUNOSUPPRESSANT DRUG THERAPY
     Dosage: 267 MG, QD
     Route: 065
  12. ACTRAPID MC [Concomitant]
     Active Substance: INSULIN PORK\INSULIN PURIFIED PORK
     Indication: PRODUCT USED FOR UNKNOWN INDICATION
     Route: 065
  13. MEROPENEM. [Concomitant]
     Active Substance: MEROPENEM
     Indication: STAPHYLOCOCCAL INFECTION
     Route: 065
  14. CELLCEPT [Suspect]
     Active Substance: MYCOPHENOLATE MOFETIL\MYCOPHENOLATE MOFETIL HYDROCHLORIDE
     Indication: IMMUNOSUPPRESSANT DRUG THERAPY
  15. SULFAMETHOXAZOLE AND TRIMETHOPRIM [Concomitant]
     Active Substance: SULFAMETHOXAZOLE\TRIMETHOPRIM
     Indication: STAPHYLOCOCCAL INFECTION
     Route: 065
  16. MILURIT [Suspect]
     Active Substance: ALLOPURINOL
     Indication: RENAL TRANSPLANT
     Dosage: 100 MG, BID
     Route: 065
  17. GENTAMICIN. [Concomitant]
     Active Substance: GENTAMICIN
     Indication: STAPHYLOCOCCAL INFECTION
     Route: 065
  18. LIGNOCAINE [Concomitant]
     Active Substance: LIDOCAINE HYDROCHLORIDE
     Indication: ORAL PAIN
     Dosage: 100 MG, BID
     Route: 065
  19. DEXAVEN [Concomitant]
     Active Substance: DEXAMETHASONE
     Indication: PRODUCT USED FOR UNKNOWN INDICATION
     Route: 065
  20. ENCORTON [Suspect]
     Active Substance: PREDNISONE
     Indication: RENAL TRANSPLANT
     Dosage: 1 DF, QD
     Route: 065
  21. BISOCARD [Suspect]
     Active Substance: BISOPROLOL
     Indication: RENAL TRANSPLANT
     Dosage: 10 MG, QD
     Route: 065
  22. BISOCARD [Suspect]
     Active Substance: BISOPROLOL
     Indication: IMMUNOSUPPRESSANT DRUG THERAPY
  23. ZOCOR [Suspect]
     Active Substance: SIMVASTATIN
     Indication: IMMUNOSUPPRESSANT DRUG THERAPY
  24. LIPANTHYL [Suspect]
     Active Substance: FENOFIBRATE
     Indication: RENAL TRANSPLANT
  25. TETRACYCLINE [Concomitant]
     Active Substance: TETRACYCLINE
     Indication: STAPHYLOCOCCAL INFECTION
     Route: 065
  26. DOXYCYCLINE. [Concomitant]
     Active Substance: DOXYCYCLINE
     Indication: STAPHYLOCOCCAL INFECTION
     Dosage: 0.1 G, BID
     Route: 065
  27. CICLOSPORIN [Suspect]
     Active Substance: CYCLOSPORINE
     Indication: RENAL TRANSPLANT
     Route: 065
  28. IPOREL [Suspect]
     Active Substance: CLONIDINE
     Indication: IMMUNOSUPPRESSANT DRUG THERAPY
  29. TRITACE [Suspect]
     Active Substance: RAMIPRIL
     Indication: RENAL TRANSPLANT
     Dosage: 10 MG, QD
     Route: 065
  30. IMIPENEM [Concomitant]
     Active Substance: IMIPENEM
     Indication: STAPHYLOCOCCAL INFECTION
     Route: 065
  31. TRITACE [Suspect]
     Active Substance: RAMIPRIL
     Indication: IMMUNOSUPPRESSANT DRUG THERAPY
  32. MILURIT [Suspect]
     Active Substance: ALLOPURINOL
     Indication: IMMUNOSUPPRESSANT DRUG THERAPY
  33. ISOPHANE INSULIN [Concomitant]
     Active Substance: INSULIN NOS
     Indication: PRODUCT USED FOR UNKNOWN INDICATION
     Route: 065
  34. NYSTATIN. [Concomitant]
     Active Substance: NYSTATIN
     Indication: DRY MOUTH
     Route: 065

REACTIONS (3)
  - Malignant neoplasm progression [Unknown]
  - Dysphonia [Unknown]
  - Glottis carcinoma [Unknown]

NARRATIVE: CASE EVENT DATE: 201308
